FAERS Safety Report 7386440-X (Version None)
Quarter: 2011Q1

REPORT INFORMATION
  Report Type: 
  Country: None (occurrence: None)
  Receive Date: 20110331
  Receipt Date: 20110324
  Transmission Date: 20110831
  Serious: Yes (Other)
  Sender: FDA-Public Use
  Company Number: PHBS2010DE00631

PATIENT
  Sex: Male

DRUGS (5)
  1. CARBAMAZEPINE [Concomitant]
  2. EXTAVIA [Suspect]
     Indication: MULTIPLE SCLEROSIS
     Dosage: 1 ML (250 MCG), QOD
     Route: 058
     Dates: start: 20090626
  3. TEMAZEPAM [Concomitant]
     Indication: MUSCLE SPASTICITY
     Dosage: 50 MG/DAY
     Route: 048
     Dates: start: 20100503
  4. TOLPERISONE [Concomitant]
  5. BACLOFEN [Concomitant]
     Indication: MUSCLE SPASTICITY
     Dosage: 50 MG DAILY
     Route: 048

REACTIONS (3)
  - FEMORAL NECK FRACTURE [None]
  - FACIAL PAIN [None]
  - FALL [None]
